FAERS Safety Report 7875435-5 (Version None)
Quarter: 2011Q4

REPORT INFORMATION
  Report Type: 
  Country: None (occurrence: None)
  Receive Date: 20111031
  Receipt Date: 20111020
  Transmission Date: 20120403
  Serious: Yes (Hospitalization, Other)
  Sender: FDA-Public Use
  Company Number: PHFR2011IE00990

PATIENT
  Sex: Male

DRUGS (6)
  1. LISINOPRIL [Concomitant]
     Indication: HYPERTENSION
     Dosage: 5 MG, UNK
     Route: 048
  2. LANSOPRAZOLE [Concomitant]
     Indication: GASTROOESOPHAGEAL REFLUX DISEASE
     Dosage: 30 MG, UNK
     Route: 048
  3. CLOZARIL [Suspect]
     Indication: SCHIZOPHRENIA
     Dosage: 600 MG/DAY
     Route: 048
     Dates: start: 20000413, end: 20110126
  4. AMISULPRIDE [Concomitant]
     Indication: SCHIZOPHRENIA
     Dosage: 1000 MG, UNK
     Route: 048
  5. VENLAFAXINE [Concomitant]
     Indication: DEPRESSION
     Dosage: 300 MG, UNK
     Route: 048
  6. ATORVASTATIN [Concomitant]
     Indication: BLOOD CHOLESTEROL INCREASED
     Dosage: 10 MG, UNK
     Route: 048

REACTIONS (9)
  - AGITATION [None]
  - CONVULSION [None]
  - HYPONATRAEMIA [None]
  - BRUXISM [None]
  - CONFUSIONAL STATE [None]
  - GRAND MAL CONVULSION [None]
  - URINARY INCONTINENCE [None]
  - AGGRESSION [None]
  - FOAMING AT MOUTH [None]
